FAERS Safety Report 17988780 (Version 1)
Quarter: 2020Q3

REPORT INFORMATION
  Report Type: Other
  Country: FR (occurrence: FR)
  Receive Date: 20200707
  Receipt Date: 20200707
  Transmission Date: 20201103
  Serious: Yes (Other)
  Sender: FDA-Public Use
  Company Number: FR-GE HEALTHCARE LIFE SCIENCES-2020CSU002787

PATIENT

DRUGS (3)
  1. RITUXIMAB. [Suspect]
     Active Substance: RITUXIMAB
     Indication: PURPURA
     Dosage: 660 MG
     Route: 042
     Dates: start: 20200522
  2. OMNIPAQUE [Suspect]
     Active Substance: IOHEXOL
     Indication: PRODUCT USED FOR UNKNOWN INDICATION
  3. OMNIPAQUE [Suspect]
     Active Substance: IOHEXOL
     Indication: COMPUTERISED TOMOGRAM HEAD
     Dosage: 120 ML, SINGLE
     Route: 042
     Dates: start: 20200527, end: 20200527

REACTIONS (3)
  - Arthralgia [Recovered/Resolved]
  - Rash [Recovered/Resolved]
  - Odynophagia [Recovered/Resolved]

NARRATIVE: CASE EVENT DATE: 20200529
